FAERS Safety Report 8088917-0 (Version None)
Quarter: 2012Q1

REPORT INFORMATION
  Report Type: 
  Country: None (occurrence: None)
  Receive Date: 20120128
  Receipt Date: 20110808
  Transmission Date: 20120608
  Serious: No
  Sender: FDA-Public Use
  Company Number: US-ABBOTT-10P-163-0646440-00

PATIENT
  Sex: Male
  Weight: 66.738 kg

DRUGS (9)
  1. VITAMIN B-12 [Concomitant]
     Indication: VITAMIN SUPPLEMENTATION
  2. PROBIOTICS [Concomitant]
     Indication: PRODUCT USED FOR UNKNOWN INDICATION
  3. AMLODIPINE [Concomitant]
     Indication: HYPERTENSION
  4. FOSAMAX [Concomitant]
     Indication: OSTEOPOROSIS
  5. HUMIRA [Suspect]
     Dates: start: 20100601
  6. VITAMIN TAB [Concomitant]
     Indication: VITAMIN SUPPLEMENTATION
  7. LISINOPRIL [Concomitant]
     Indication: HYPERTENSION
  8. HUMIRA [Suspect]
     Indication: CROHN'S DISEASE
     Dates: start: 20100401
  9. PENTASA [Concomitant]
     Indication: CROHN'S DISEASE

REACTIONS (10)
  - WEIGHT DECREASED [None]
  - LACTOSE INTOLERANCE [None]
  - FEELING COLD [None]
  - CROHN'S DISEASE [None]
  - BODY FAT DISORDER [None]
  - FATIGUE [None]
  - DECREASED APPETITE [None]
  - LYMPHADENOPATHY [None]
  - WHITE BLOOD CELL COUNT INCREASED [None]
  - SMALL INTESTINAL OBSTRUCTION [None]
